FAERS Safety Report 4349436-8 (Version None)
Quarter: 2004Q2

REPORT INFORMATION
  Report Type: 
  Country: None (occurrence: None)
  Receive Date: 20040426
  Receipt Date: 20040414
  Transmission Date: 20050107
  Serious: Yes (Other)
  Sender: FDA-Public Use
  Company Number: FR-JNJFOC-20040301822

PATIENT
  Age: 85 Year
  Sex: Male

DRUGS (1)
  1. REMINYL [Suspect]
     Indication: MEMORY IMPAIRMENT
     Dosage: 4 MG, 2 IN 1 DAY, ORAL
     Route: 048
     Dates: start: 20040215

REACTIONS (5)
  - EMOTIONAL DISORDER [None]
  - EXCITABILITY [None]
  - IMPULSIVE BEHAVIOUR [None]
  - PERSONALITY CHANGE [None]
  - SCREAMING [None]
